FAERS Safety Report 5317851-1 (Version None)
Quarter: 2007Q2

REPORT INFORMATION
  Report Type: 
  Country: None (occurrence: None)
  Receive Date: 20070430
  Receipt Date: 20070423
  Transmission Date: 20071010
  Serious: Yes (Other)
  Sender: FDA-Public Use
  Company Number: THQ2006A01263

PATIENT
  Age: 74 Year
  Sex: Female

DRUGS (11)
  1. ACTOS [Suspect]
     Indication: DYSLIPIDAEMIA
     Dosage: 15 MG (15 MG, 1 IN 1 D)
     Route: 048
     Dates: start: 20061001, end: 20061106
  2. ACTOS [Suspect]
     Indication: GLUCOSE TOLERANCE IMPAIRED
     Dosage: 15 MG (15 MG, 1 IN 1 D)
     Route: 048
     Dates: start: 20061001, end: 20061106
  3. LEVOTIROXIN (LEVOTHYROXINE) [Concomitant]
  4. TELMISARTAN [Concomitant]
  5. RILMENIDINE [Concomitant]
  6. NIFEDIPINE [Concomitant]
  7. LANSOPRAZOLE [Concomitant]
  8. FLUOXETINE [Concomitant]
  9. LORABID [Concomitant]
  10. CLONAZEPAM [Concomitant]
  11. ISOSORBIDE [Concomitant]

REACTIONS (3)
  - PERIPHERAL EMBOLISM [None]
  - VASODILATION PROCEDURE [None]
  - VENOUS OCCLUSION [None]
